FAERS Safety Report 19988990 (Version 1)
Quarter: 2021Q4

REPORT INFORMATION
  Report Type: Report from Study
  Country: None (occurrence: CA)
  Receive Date: 20211024
  Receipt Date: 20211024
  Transmission Date: 20220304
  Serious: Yes (Other)
  Sender: FDA-Public Use
  Company Number: CA-ABBVIE-20K-028-3383990-00

PATIENT
  Sex: Female

DRUGS (2)
  1. HUMIRA [Suspect]
     Active Substance: ADALIMUMAB
     Indication: Crohn^s disease
     Route: 058
     Dates: start: 20160211, end: 20210919
  2. HUMIRA [Suspect]
     Active Substance: ADALIMUMAB
     Route: 058
     Dates: start: 202110

REACTIONS (9)
  - Seizure [Unknown]
  - Adverse food reaction [Unknown]
  - Gastrointestinal examination abnormal [Unknown]
  - Stress [Unknown]
  - Migraine [Unknown]
  - Inflammation [Recovering/Resolving]
  - Road traffic accident [Recovered/Resolved]
  - Vaginal infection [Unknown]
  - Injection site pain [Unknown]

NARRATIVE: CASE EVENT DATE: 20160101
